FAERS Safety Report 7644506 (Version 3)
Quarter: 2014Q1

REPORT INFORMATION
  Report Type: Spontaneous
  Country: US (occurrence: US)
  Receive Date: 20101028
  Receipt Date: 20140108
  Transmission Date: 20141002
  Serious: Yes (Hospitalization, Other)
  Sender: FDA-Public Use
  Company Number: US-BAYER-201038244NA

PATIENT
  Age: 20 Year
  Sex: Female
  Weight: 100 kg

DRUGS (6)
  1. YASMIN [Suspect]
     Indication: PRODUCT USED FOR UNKNOWN INDICATION
     Dosage: UNK UNK, UNK
     Route: 048
     Dates: start: 20060204, end: 20090802
  2. YAZ [Suspect]
     Dosage: UNK UNK, UNK
     Route: 048
     Dates: start: 20060204
  3. OCELLA [Suspect]
     Indication: PRODUCT USED FOR UNKNOWN INDICATION
     Dosage: UNK
     Dates: start: 20060204, end: 20090802
  4. PREVACID [Concomitant]
     Dosage: 30 MG, UNK
  5. DICYCLOMINE [Concomitant]
     Dosage: 20 MG, UNK
  6. VIOKASE [PANCREATIN] [Concomitant]
     Dosage: 8 [AS WRITTEN]

REACTIONS (6)
  - Gallbladder injury [Unknown]
  - Cholecystitis chronic [None]
  - Biliary dyskinesia [None]
  - Abdominal pain upper [None]
  - Nausea [None]
  - Vomiting [None]
